FAERS Safety Report 21896254 (Version 1)
Quarter: 2023Q1

REPORT INFORMATION
  Report Type: Spontaneous
  Country: DE (occurrence: DE)
  Receive Date: 20230123
  Receipt Date: 20230123
  Transmission Date: 20230418
  Serious: No
  Sender: FDA-Public Use
  Company Number: DE-ALKEM LABORATORIES LIMITED-DE-ALKEM-2022-11377

PATIENT
  Age: 25 Year
  Sex: Female
  Weight: 62 kg

DRUGS (4)
  1. FINGOLIMOD [Suspect]
     Active Substance: FINGOLIMOD
     Indication: Multiple sclerosis
     Dosage: 0.5 MILLIGRAM, QD(EVERY 1 DAY)
     Route: 048
     Dates: start: 20200813
  2. CLADRIBINE [Suspect]
     Active Substance: CLADRIBINE
     Indication: Relapsing-remitting multiple sclerosis
     Dosage: UNK, TABLET (UNCOATED)
     Route: 048
     Dates: start: 20200217, end: 20200221
  3. CLADRIBINE [Suspect]
     Active Substance: CLADRIBINE
     Dosage: UNK
     Route: 048
  4. EXTAVIA [Concomitant]
     Active Substance: INTERFERON BETA-1B
     Indication: Multiple sclerosis
     Dosage: 250 MICROGRAM (EVERY 0.33 WEEK)
     Route: 058
     Dates: start: 20200504, end: 20200617

REACTIONS (1)
  - Lymphopenia [Not Recovered/Not Resolved]

NARRATIVE: CASE EVENT DATE: 20200907
